FAERS Safety Report 4771051-2 (Version None)
Quarter: 2005Q3

REPORT INFORMATION
  Report Type: 
  Country: None (occurrence: None)
  Receive Date: 20050914
  Receipt Date: 20050826
  Transmission Date: 20060218
  Serious: Yes (Hospitalization)
  Sender: FDA-Public Use
  Company Number: EWC050845570

PATIENT
  Age: 74 Year
  Sex: Female

DRUGS (4)
  1. OLANZAPINE [Suspect]
     Indication: DEPRESSION
     Dosage: 5 MG
     Dates: start: 20030101, end: 20050401
  2. EFFEXOR [Concomitant]
  3. MIRTAZAPINE [Concomitant]
  4. GALANTAMINE HYDROBROMIDE [Concomitant]

REACTIONS (3)
  - BLOOD AMYLASE INCREASED [None]
  - BLOOD CREATINE PHOSPHOKINASE INCREASED [None]
  - LIPASE INCREASED [None]
